FAERS Safety Report 7232329-6 (Version None)
Quarter: 2011Q1

REPORT INFORMATION
  Report Type: 
  Country: None (occurrence: None)
  Receive Date: 20110119
  Receipt Date: 20110104
  Transmission Date: 20110831
  Serious: Yes (Hospitalization)
  Sender: FDA-Public Use
  Company Number: US-RANBAXY-2011RR-41155

PATIENT
  Age: 22 Year
  Sex: Male

DRUGS (12)
  1. LEVOFLOXACIN [Suspect]
     Indication: PYREXIA
     Route: 065
  2. LEVOFLOXACIN [Suspect]
     Indication: DYSPNOEA
  3. PENICILLIN [Suspect]
     Indication: COUGH
     Route: 048
  4. PENICILLIN [Suspect]
     Indication: SINUS OPERATION
  5. AMOXICILLIN [Suspect]
     Indication: SINUS OPERATION
  6. AZITHROMYCIN [Concomitant]
     Indication: PNEUMONIA
  7. LEVOFLOXACIN [Suspect]
     Indication: OROPHARYNGEAL PAIN
  8. LEVOFLOXACIN [Suspect]
     Indication: SINUS CONGESTION
  9. AMOXICILLIN [Suspect]
     Indication: COUGH
     Route: 065
  10. PROCHLORPERAZINE [Suspect]
     Indication: COUGH
     Route: 065
  11. LAMOTRIGINE [Concomitant]
     Indication: BIPOLAR DISORDER
     Dosage: UNK
  12. PROCHLORPERAZINE [Suspect]
     Indication: SINUS OPERATION

REACTIONS (2)
  - DRUG INEFFECTIVE [None]
  - STEVENS-JOHNSON SYNDROME [None]
